FAERS Safety Report 17545706 (Version 2)
Quarter: 2020Q1

REPORT INFORMATION
  Report Type: Spontaneous
  Country: PT (occurrence: PT)
  Receive Date: 20200316
  Receipt Date: 20200319
  Transmission Date: 20200409
  Serious: Yes (Other)
  Sender: FDA-Public Use
  Company Number: PT-MYLANLABS-2020M1026966

PATIENT
  Age: 64 Year

DRUGS (9)
  1. IRBESARTAN. [Concomitant]
     Active Substance: IRBESARTAN
     Dosage: UNK
  2. LEVOTHYROXINE SODIUM. [Concomitant]
     Active Substance: LEVOTHYROXINE SODIUM
     Indication: HYPOTHYROIDISM
     Dosage: 0.1MG AO PEQUENO-ALMO?O
  3. ELIQUIS [Concomitant]
     Active Substance: APIXABAN
     Dosage: 1 CP AO PEQUENO-ALMO?O E 1CP AO JANTAR (COMPRIMIDO REVESTIDO POR PEL?CULA)
  4. PANTOPRAZOLE [Concomitant]
     Active Substance: PANTOPRAZOLE
     Dosage: 40MG EM JEJUM
  5. FUROSEMIDE. [Concomitant]
     Active Substance: FUROSEMIDE
     Dosage: 1/2 CP AO PEQUENO-ALMO?O
  6. AMIODARONE [Concomitant]
     Active Substance: AMIODARONE
     Dosage: 1CP/DIA
  7. ALPRAZOLAM. [Concomitant]
     Active Substance: ALPRAZOLAM
     Dosage: 1 CP AO PEQUENO-ALMO?O E 1 CP ALMO?O
  8. BROMAZEPAM [Concomitant]
     Active Substance: BROMAZEPAM
     Dosage: 1 CP AO DEITAR
  9. ALENDRONATE [Suspect]
     Active Substance: ALENDRONATE SODIUM
     Indication: PRODUCT USED FOR UNKNOWN INDICATION
     Dosage: 1 CP/SEMANA
     Route: 048
     Dates: start: 20200120, end: 20200120

REACTIONS (2)
  - Cough [Recovered/Resolved]
  - Myalgia [Recovered/Resolved]

NARRATIVE: CASE EVENT DATE: 20200120
